FAERS Safety Report 25206304 (Version 1)
Quarter: 2025Q2

REPORT INFORMATION
  Report Type: Spontaneous
  Country: US (occurrence: US)
  Receive Date: 20250417
  Receipt Date: 20250417
  Transmission Date: 20250717
  Serious: Yes (Life-Threatening, Hospitalization)
  Sender: DR REDDYS
  Company Number: None

PATIENT
  Age: 6 Month
  Sex: Male
  Weight: 8.9 kg

DRUGS (1)
  1. PROPOFOL [Suspect]
     Active Substance: PROPOFOL
     Indication: Sedation
     Dosage: 12.9MG/ KG/HOUR (215 MCG/KG/MINUTE) FOR APPROXIMATELY 13 HOURS

REACTIONS (8)
  - Propofol infusion syndrome [Unknown]
  - Ventricular tachycardia [Unknown]
  - Partial seizures [Recovering/Resolving]
  - Status epilepticus [Recovering/Resolving]
  - Cerebral haemorrhage [Unknown]
  - Toxic leukoencephalopathy [Unknown]
  - Overdose [Unknown]
  - Incorrect product administration duration [Unknown]
